FAERS Safety Report 5477975-5 (Version None)
Quarter: 2007Q4

REPORT INFORMATION
  Report Type: 
  Country: None (occurrence: None)
  Receive Date: 20071005
  Receipt Date: 20071002
  Transmission Date: 20080405
  Serious: Yes (Hospitalization, Other)
  Sender: FDA-Public Use
  Company Number: NZ-BRISTOL-MYERS SQUIBB COMPANY-13927942

PATIENT
  Age: 55 Year
  Sex: Male

DRUGS (9)
  1. IFOSFAMIDE [Suspect]
     Indication: DIFFUSE LARGE B-CELL LYMPHOMA
     Route: 042
     Dates: end: 20070916
  2. ETOPOSIDE [Suspect]
     Indication: DIFFUSE LARGE B-CELL LYMPHOMA
     Route: 042
     Dates: end: 20070916
  3. CARBOPLATIN [Suspect]
     Indication: DIFFUSE LARGE B-CELL LYMPHOMA
     Route: 042
     Dates: end: 20070916
  4. RITUXIMAB [Suspect]
     Indication: DIFFUSE LARGE B-CELL LYMPHOMA
     Route: 042
     Dates: end: 20070916
  5. LENOGRASTIM [Suspect]
     Indication: DIFFUSE LARGE B-CELL LYMPHOMA
     Route: 058
     Dates: end: 20070918
  6. CYCLOPHOSPHAMIDE [Concomitant]
     Dates: start: 20061101, end: 20070201
  7. DOXORUBICIN HCL [Concomitant]
     Dates: start: 20061101, end: 20070201
  8. PREDNISONE [Concomitant]
     Dates: start: 20061101, end: 20070201
  9. VINCRISTINE [Concomitant]
     Dates: start: 20061101, end: 20070201

REACTIONS (6)
  - DISEASE PROGRESSION [None]
  - HAEMOGLOBIN DECREASED [None]
  - HERPES ZOSTER [None]
  - MUSCULOSKELETAL CHEST PAIN [None]
  - PLATELET COUNT DECREASED [None]
  - WHITE BLOOD CELL COUNT DECREASED [None]
